FAERS Safety Report 18998425 (Version 1)
Quarter: 2021Q1

REPORT INFORMATION
  Report Type: Report from Study
  Country: US (occurrence: US)
  Receive Date: 20210312
  Receipt Date: 20210312
  Transmission Date: 20210420
  Serious: No
  Sender: FDA-Public Use
  Company Number: US-ACADIA PHARMACEUTICALS INC.-ACA-2021-PIM-000783

PATIENT
  Sex: Female

DRUGS (15)
  1. BENEFIBER [CYAMOPSIS TETRAGONOLOBA GUM] [Concomitant]
     Active Substance: GUAR GUM
  2. CARBIDOPA/LEVODOPA [Concomitant]
     Active Substance: CARBIDOPA\LEVODOPA
  3. FLUDROCORTISONE [Concomitant]
     Active Substance: FLUDROCORTISONE
  4. OMEGA 3 [FISH OIL] [Concomitant]
     Active Substance: FISH OIL
  5. VITAMIN B12 [VITAMIN B12 NOS] [Concomitant]
     Active Substance: CYANOCOBALAMIN
  6. RIVASTIGMINE. [Concomitant]
     Active Substance: RIVASTIGMINE
  7. ATORVASTATIN [Concomitant]
     Active Substance: ATORVASTATIN
  8. NOURIANZ [Concomitant]
     Active Substance: ISTRADEFYLLINE
  9. QUETIAPINE. [Concomitant]
     Active Substance: QUETIAPINE
  10. SERTRALINE [Concomitant]
     Active Substance: SERTRALINE HYDROCHLORIDE
  11. NUPLAZID [Suspect]
     Active Substance: PIMAVANSERIN TARTRATE
     Indication: PARKINSON^S DISEASE
     Dosage: 34 MILLIGRAM, QD
     Route: 048
  12. SODIUM CHLORIDE. [Concomitant]
     Active Substance: SODIUM CHLORIDE
  13. GABAPENTIN. [Concomitant]
     Active Substance: GABAPENTIN
  14. MESTINON [Concomitant]
     Active Substance: PYRIDOSTIGMINE BROMIDE
  15. VITAMIN D [COLECALCIFEROL] [Concomitant]
     Active Substance: CHOLECALCIFEROL

REACTIONS (2)
  - Nausea [Not Recovered/Not Resolved]
  - Headache [Not Recovered/Not Resolved]
